FAERS Safety Report 15357009 (Version 15)
Quarter: 2018Q4

REPORT INFORMATION
  Report Type: Spontaneous
  Country: PT (occurrence: PT)
  Receive Date: 20180906
  Receipt Date: 20181229
  Transmission Date: 20190204
  Serious: Yes (Hospitalization, Disabling, Other)
  Sender: FDA-Public Use
  Company Number: PHHY2018PT090173

PATIENT
  Age: 55 Year
  Sex: Male

DRUGS (5)
  1. ETANERCEPT [Suspect]
     Active Substance: ETANERCEPT
     Indication: ARTHRALGIA
     Dosage: UNK
     Route: 058
  2. ETANERCEPT [Suspect]
     Active Substance: ETANERCEPT
     Indication: PSORIASIS
  3. NAPROXEN. [Suspect]
     Active Substance: NAPROXEN
     Indication: ARTHRALGIA
     Dosage: UNK
     Route: 065
  4. DICLOFENAC [Suspect]
     Active Substance: DICLOFENAC
     Indication: ARTHRALGIA
     Dosage: UNK
     Route: 065
  5. METHOTREXATE. [Suspect]
     Active Substance: METHOTREXATE
     Indication: ARTHRALGIA
     Dosage: 20 MG, QW
     Route: 048

REACTIONS (12)
  - Nephrotic syndrome [Not Recovered/Not Resolved]
  - Oedema peripheral [Unknown]
  - Amyloidosis [Unknown]
  - Hypoalbuminaemia [Unknown]
  - Periorbital oedema [Unknown]
  - Microalbuminuria [Unknown]
  - Hypoproteinaemia [Unknown]
  - Hypertriglyceridaemia [Unknown]
  - Hypercholesterolaemia [Unknown]
  - Condition aggravated [Unknown]
  - Proteinuria [Unknown]
  - Secondary amyloidosis [Unknown]

NARRATIVE: CASE EVENT DATE: 201712
